FAERS Safety Report 5153229-1 (Version None)
Quarter: 2006Q4

REPORT INFORMATION
  Report Type: 
  Country: None (occurrence: None)
  Receive Date: 20061117
  Receipt Date: 20061108
  Transmission Date: 20070319
  Serious: Yes (Hospitalization)
  Sender: FDA-Public Use
  Company Number: 2006PK02337

PATIENT
  Age: 45 Year
  Sex: Female

DRUGS (16)
  1. BELOC ZOK [Interacting]
     Route: 048
     Dates: start: 20060101
  2. CITALOPRAM HYDROBROMIDE [Interacting]
     Route: 048
     Dates: end: 20060919
  3. CITALOPRAM HYDROBROMIDE [Interacting]
     Route: 048
     Dates: start: 20060620
  4. NEUROCIL [Suspect]
     Route: 048
  5. TRIMINEURIN [Suspect]
     Route: 048
  6. TAXILAN [Interacting]
     Route: 048
     Dates: end: 20060926
  7. TAXILAN [Interacting]
     Dosage: 400 TO 350 MG
     Route: 048
     Dates: start: 20060927
  8. TAXILAN [Interacting]
     Route: 048
     Dates: start: 20060928
  9. MST MUNDIPHARMA [Suspect]
     Route: 048
     Dates: start: 20060919, end: 20060922
  10. LOCOL [Interacting]
     Route: 048
     Dates: start: 20060101
  11. ASPIRIN [Concomitant]
     Route: 048
  12. TOREM [Concomitant]
     Route: 048
  13. HCT HEXAL [Concomitant]
     Route: 048
  14. COVERSUM [Concomitant]
     Route: 048
  15. NEXIUM [Concomitant]
     Route: 048
  16. GYNAMON [Concomitant]

REACTIONS (10)
  - BODY TEMPERATURE INCREASED [None]
  - BRADYPHRENIA [None]
  - CONVULSION [None]
  - DISORIENTATION [None]
  - DRUG INTERACTION [None]
  - LOSS OF CONSCIOUSNESS [None]
  - MUSCLE TWITCHING [None]
  - PALLOR [None]
  - TREMOR [None]
  - URINARY INCONTINENCE [None]
